FAERS Safety Report 18927199 (Version 1)
Quarter: 2021Q1

REPORT INFORMATION
  Report Type: Spontaneous
  Country: US (occurrence: US)
  Receive Date: 20210223
  Receipt Date: 20210223
  Transmission Date: 20210420
  Serious: Yes (Other)
  Sender: FDA-Public Use
  Company Number: US-GLAXOSMITHKLINE-US2021GSK040641

PATIENT
  Sex: Female

DRUGS (4)
  1. ZANTAC [Suspect]
     Active Substance: RANITIDINE HYDROCHLORIDE
     Indication: HYPERCHLORHYDRIA
     Dosage: UNKNOWN AT THIS TIME BOTH
     Route: 065
     Dates: start: 198501, end: 202003
  2. RANITIDINE CAPSULE [Suspect]
     Active Substance: RANITIDINE
     Indication: HYPERCHLORHYDRIA
     Dosage: UNKNOWN AT THIS TIME BOTH
     Route: 065
     Dates: start: 198501, end: 202003
  3. ZANTAC [Suspect]
     Active Substance: RANITIDINE HYDROCHLORIDE
     Indication: HYPERCHLORHYDRIA
     Dosage: UNKNOWN AT THIS TIME BOTH
     Route: 065
     Dates: start: 198501, end: 202003
  4. ZANTAC [Suspect]
     Active Substance: RANITIDINE HYDROCHLORIDE
     Indication: HYPERCHLORHYDRIA
     Dosage: UNKNOWN AT THIS TIME BOTH
     Route: 065
     Dates: start: 198501, end: 202003

REACTIONS (1)
  - Colorectal cancer [Unknown]
